FAERS Safety Report 19103299 (Version 2)
Quarter: 2021Q2

REPORT INFORMATION
  Report Type: Spontaneous
  Country: CA (occurrence: CA)
  Receive Date: 20210407
  Receipt Date: 20210624
  Transmission Date: 20210717
  Serious: Yes (Other)
  Sender: FDA-Public Use
  Company Number: NVSC2021CA073907

PATIENT
  Age: 60 Year
  Sex: Female

DRUGS (5)
  1. HYDROXYCHLOROQUINE [Concomitant]
     Active Substance: HYDROXYCHLOROQUINE
     Indication: PRODUCT USED FOR UNKNOWN INDICATION
     Dosage: UNK
     Route: 048
  2. SULFASALAZINE. [Concomitant]
     Active Substance: SULFASALAZINE
     Indication: PRODUCT USED FOR UNKNOWN INDICATION
     Route: 048
  3. METHOTREXATE. [Suspect]
     Active Substance: METHOTREXATE
     Indication: RHEUMATOID ARTHRITIS
     Route: 042
  4. ERELZI [Suspect]
     Active Substance: ETANERCEPT-SZZS
     Indication: RHEUMATOID ARTHRITIS
     Route: 065
  5. XELJANZ [Concomitant]
     Active Substance: TOFACITINIB CITRATE
     Indication: PRODUCT USED FOR UNKNOWN INDICATION
     Route: 048

REACTIONS (22)
  - Oral mucosal discolouration [Unknown]
  - Cough [Unknown]
  - Erythema [Unknown]
  - Headache [Unknown]
  - Mobility decreased [Unknown]
  - Pneumonia [Unknown]
  - Myalgia [Unknown]
  - Eye swelling [Unknown]
  - Loss of consciousness [Unknown]
  - Movement disorder [Unknown]
  - Pain [Unknown]
  - Body temperature decreased [Unknown]
  - Chest pain [Unknown]
  - Coronavirus infection [Unknown]
  - Trigger finger [Unknown]
  - Sinusitis [Unknown]
  - Swelling face [Unknown]
  - Blister [Unknown]
  - Chest discomfort [Unknown]
  - Asthenia [Unknown]
  - Arthropod bite [Unknown]
  - Feeling abnormal [Unknown]
